FAERS Safety Report 5015804-4 (Version None)
Quarter: 2006Q1

REPORT INFORMATION
  Report Type: 
  Country: None (occurrence: None)
  Receive Date: 20060331
  Receipt Date: 20060331
  Transmission Date: 20060701
  Serious: Yes (Hospitalization)
  Sender: FDA-Public Use
  Company Number: None

PATIENT
  Age: 41 Year
  Sex: Male
  Weight: 72 kg

DRUGS (2)
  1. VANCOMYCIN [Suspect]
     Indication: CELLULITIS STAPHYLOCOCCAL
     Dosage: 1 GM IV Q8H
     Route: 042
     Dates: start: 20060526, end: 20060527
  2. VANCOMYCIN [Suspect]

REACTIONS (2)
  - PRURITUS [None]
  - RASH GENERALISED [None]
